FAERS Safety Report 23956939 (Version 6)
Quarter: 2024Q4

REPORT INFORMATION
  Report Type: Spontaneous
  Country: US (occurrence: US)
  Receive Date: 20240610
  Receipt Date: 20241206
  Transmission Date: 20250114
  Serious: Yes (Other)
  Sender: PFIZER
  Company Number: US-PFIZER INC-202400187142

PATIENT
  Age: 68 Year
  Sex: Female

DRUGS (4)
  1. TUKYSA [Suspect]
     Active Substance: TUCATINIB
     Dosage: 2 PILLS THE 1ST DAY
  2. TUKYSA [Suspect]
     Active Substance: TUCATINIB
     Dosage: 2 DF
  3. TUKYSA [Suspect]
     Active Substance: TUCATINIB
     Dosage: 50MG; 4 TABLETS TWICE DAILY.
  4. TUKYSA [Suspect]
     Active Substance: TUCATINIB
     Dosage: 200 MG, DAILY

REACTIONS (5)
  - Thrombosis [Unknown]
  - Arthralgia [Unknown]
  - Cystitis [Unknown]
  - Nasopharyngitis [Unknown]
  - Faeces hard [Unknown]
